FAERS Safety Report 5249789-2 (Version None)
Quarter: 2007Q1

REPORT INFORMATION
  Report Type: 
  Country: None (occurrence: None)
  Receive Date: 20070228
  Receipt Date: 20061219
  Transmission Date: 20070707
  Serious: No
  Sender: FDA-Public Use
  Company Number: US-GLAXOSMITHKLINE-A0632107A

PATIENT
  Age: 38 Year
  Sex: Female

DRUGS (7)
  1. IMITREX [Suspect]
     Indication: MIGRAINE
     Route: 058
  2. SEROQUEL [Concomitant]
  3. LITHIUM CARBONATE [Concomitant]
  4. WELLBUTRIN [Concomitant]
  5. LAMICTAL [Concomitant]
  6. NEURONTIN [Concomitant]
  7. SYNTHROID [Concomitant]

REACTIONS (3)
  - DRUG INEFFECTIVE [None]
  - PHARMACEUTICAL PRODUCT COMPLAINT [None]
  - THERAPEUTIC RESPONSE DECREASED [None]
